FAERS Safety Report 14377220 (Version 4)
Quarter: 2018Q2

REPORT INFORMATION
  Report Type: Spontaneous
  Country: DE (occurrence: DE)
  Receive Date: 20180111
  Receipt Date: 20180612
  Transmission Date: 20180711
  Serious: Yes (Hospitalization, Other)
  Sender: FDA-Public Use
  Company Number: DE-TORRENT-00007598

PATIENT
  Age: 43 Year
  Sex: Female

DRUGS (10)
  1. ARIPIPRAZOLE. [Suspect]
     Active Substance: ARIPIPRAZOLE
     Indication: COGNITIVE DISORDER
     Dosage: 5 MG PER DAY
     Route: 065
  2. DOCETAXEL. [Suspect]
     Active Substance: DOCETAXEL
     Indication: BREAST CANCER FEMALE
     Dosage: 2 X 4 CYCLES OF DOCETAXEL/TRASTUZUMAB
     Route: 065
  3. MIRTAZAPIN [Suspect]
     Active Substance: MIRTAZAPINE
     Indication: ANTIDEPRESSANT THERAPY
     Dosage: 15 MG PER DAY
     Route: 065
  4. CYCLOPHOSPHAMID [Suspect]
     Active Substance: CYCLOPHOSPHAMIDE
     Indication: BREAST CANCER FEMALE
     Dosage: 2 X 4 CYCLES OF EPIRUBICIN/CYCLOPHOSPHAMIDE (CYCLICAL)
     Route: 065
  5. GOSERELIN ACETATE [Suspect]
     Active Substance: GOSERELIN ACETATE
     Indication: BREAST CANCER FEMALE
     Dosage: PHARMACEUTICAL DOSE FORM : DEPOT
     Route: 058
  6. LITHIUM CARBONATE. [Suspect]
     Active Substance: LITHIUM CARBONATE
     Indication: COGNITIVE DISORDER
     Dosage: 675 MG PER DAY
     Route: 065
  7. VENLAFAXINE [Suspect]
     Active Substance: VENLAFAXINE HYDROCHLORIDE
     Indication: COGNITIVE DISORDER
     Dosage: 112.5 MG PER DAY
     Route: 065
  8. TRASTUZUMAB. [Suspect]
     Active Substance: TRASTUZUMAB
     Indication: BREAST CANCER FEMALE
     Dosage: 2 X 4 CYCLES CYCLES WITH DOCETAXEL/TRASTUZUMAB
     Route: 065
  9. EPIRUBICIN [Suspect]
     Active Substance: EPIRUBICIN
     Indication: BREAST CANCER FEMALE
     Dosage: 2 X 4 CYCLES
  10. QUETIAPIN [Suspect]
     Active Substance: QUETIAPINE
     Indication: COGNITIVE DISORDER
     Dosage: 150 MG PER DAY
     Route: 048

REACTIONS (14)
  - Logorrhoea [Not Recovered/Not Resolved]
  - Disturbance in attention [Not Recovered/Not Resolved]
  - Mood swings [Recovering/Resolving]
  - Memory impairment [Not Recovered/Not Resolved]
  - Depressed mood [Recovering/Resolving]
  - Cognitive disorder [Not Recovered/Not Resolved]
  - Merycism [Not Recovered/Not Resolved]
  - Suicidal ideation [Not Recovered/Not Resolved]
  - Cerebral atrophy [Not Recovered/Not Resolved]
  - Cognitive disorder [Recovering/Resolving]
  - Arachnoid cyst [Not Recovered/Not Resolved]
  - Product use in unapproved indication [Unknown]
  - Off label use [Unknown]
  - Agitation [Not Recovered/Not Resolved]
